FAERS Safety Report 4666193-6 (Version None)
Quarter: 2005Q2

REPORT INFORMATION
  Report Type: 
  Country: None (occurrence: None)
  Receive Date: 20050519
  Receipt Date: 20041112
  Transmission Date: 20051028
  Serious: Yes (Other)
  Sender: FDA-Public Use
  Company Number: PHEH2004US12322

PATIENT
  Age: 55 Year
  Sex: Female

DRUGS (4)
  1. NEXIUM [Concomitant]
  2. MIACALCIN [Suspect]
     Indication: OSTEOPENIA
     Dosage: 200 IU, QOD
     Route: 045
  3. MIACALCIN [Suspect]
     Dosage: 200 IU, QD
     Route: 045
  4. MIACALCIN [Suspect]
     Dosage: 200 IU, QD
     Dates: start: 20041001, end: 20050401

REACTIONS (5)
  - BARRETT'S OESOPHAGUS [None]
  - NASAL DISCOMFORT [None]
  - NAUSEA [None]
  - RASH [None]
  - STOMACH DISCOMFORT [None]
